FAERS Safety Report 9466204 (Version 1)
Quarter: 2013Q3

REPORT INFORMATION
  Report Type: Spontaneous
  Country: US (occurrence: None)
  Receive Date: 20130816
  Receipt Date: 20130816
  Transmission Date: 20140515
  Serious: Yes (Hospitalization)
  Sender: FDA-Public Use
  Company Number: None

PATIENT
  Age: 37 Year
  Sex: Female
  Weight: 83.92 kg

DRUGS (1)
  1. SAPHRIS [Suspect]
     Indication: SUICIDAL IDEATION
     Dosage: 1  ONCE DAILY  TAKEN UNDER THE TONGUE
     Route: 060
     Dates: start: 20121210, end: 20130815

REACTIONS (1)
  - Thinking abnormal [None]
